FAERS Safety Report 5874281-1 (Version None)
Quarter: 2008Q3

REPORT INFORMATION
  Report Type: 
  Country: None (occurrence: None)
  Receive Date: 20080908
  Receipt Date: 20080828
  Transmission Date: 20090109
  Serious: Yes (Disabling)
  Sender: FDA-Public Use
  Company Number: GB-AMGEN-US306004

PATIENT
  Sex: Male

DRUGS (2)
  1. ENBREL [Suspect]
     Indication: PSORIASIS
     Route: 058
     Dates: start: 20080510
  2. DICLOFENAC [Concomitant]
     Indication: ARTHRALGIA
     Dosage: UNKNOWN DOSE AS REQUIRED
     Route: 048

REACTIONS (1)
  - DRUG INEFFECTIVE [None]
